FAERS Safety Report 9961214 (Version 1)
Quarter: 2014Q1

REPORT INFORMATION
  Report Type: Spontaneous
  Country: US (occurrence: None)
  Receive Date: 20140127
  Receipt Date: 20140127
  Transmission Date: 20141002
  Serious: Yes (Hospitalization)
  Sender: FDA-Public Use
  Company Number: 1099368

PATIENT
  Age: 60 Year
  Sex: Female

DRUGS (3)
  1. ALTEPLASE [Suspect]
     Indication: MYOCARDIAL INFARCTION
  2. ALTEPLASE [Suspect]
     Indication: CORONARY ARTERY DISEASE
  3. VALIUM (DIAZEPAM) [Concomitant]

REACTIONS (6)
  - Bradycardia [None]
  - Headache [None]
  - Oropharyngeal pain [None]
  - Rhinorrhoea [None]
  - Cough [None]
  - Ventricular tachycardia [None]
